FAERS Safety Report 20981208 (Version 1)
Quarter: 2022Q2

REPORT INFORMATION
  Report Type: Spontaneous
  Country: US (occurrence: None)
  Receive Date: 20220620
  Receipt Date: 20220620
  Transmission Date: 20220720
  Serious: No
  Sender: FDA-Public Use
  Company Number: 2022A218247

PATIENT
  Sex: Male

DRUGS (1)
  1. PULMICORT FLEXHALER [Suspect]
     Active Substance: BUDESONIDE
     Dosage: 90 MCG, 60 DOSES, TWO PUFFS TWICE A DAY,
     Route: 055

REACTIONS (2)
  - Memory impairment [Unknown]
  - Device issue [Unknown]
